FAERS Safety Report 9465660 (Version 1)
Quarter: 2013Q3

REPORT INFORMATION
  Report Type: Spontaneous
  Country: US (occurrence: US)
  Receive Date: 20130820
  Receipt Date: 20130820
  Transmission Date: 20140515
  Serious: Yes (Hospitalization, Other)
  Sender: FDA-Public Use
  Company Number: US-FRI-1000047808

PATIENT
  Age: 54 Year
  Sex: Female

DRUGS (11)
  1. TUDORZA PRESSAIR [Suspect]
     Indication: CHRONIC OBSTRUCTIVE PULMONARY DISEASE
     Dosage: 400 MCG
     Route: 048
     Dates: start: 20130806, end: 20130806
  2. THEOPHYLLINE [Concomitant]
  3. PREDNISONE [Concomitant]
  4. LANTUS [Concomitant]
     Indication: DIABETES MELLITUS
  5. NEURONTIN [Concomitant]
  6. LASIX [Concomitant]
  7. DUONEB [Concomitant]
  8. ADVAIR [Concomitant]
  9. ZOCOR [Concomitant]
  10. SPIRIVA [Concomitant]
  11. NAPROXEN [Concomitant]

REACTIONS (2)
  - Loss of consciousness [Recovered/Resolved]
  - Dyspnoea [Recovered/Resolved]
